FAERS Safety Report 20165080 (Version 1)
Quarter: 2021Q4

REPORT INFORMATION
  Report Type: Report from Study
  Country: US (occurrence: US)
  Receive Date: 20211209
  Receipt Date: 20211209
  Transmission Date: 20220303
  Serious: Yes (Other)
  Sender: FDA-Public Use
  Company Number: US-UCBSA-2021056284

PATIENT
  Sex: Female

DRUGS (1)
  1. CERTOLIZUMAB PEGOL [Suspect]
     Active Substance: CERTOLIZUMAB PEGOL
     Indication: Rheumatoid arthritis
     Dosage: 200 MILLIGRAM, EV 2 WEEKS(QOW)
     Dates: start: 202110

REACTIONS (6)
  - Diverticulitis [Not Recovered/Not Resolved]
  - Ostomy bag placement [Not Recovered/Not Resolved]
  - Stoma site infection [Not Recovered/Not Resolved]
  - Allergy to plants [Not Recovered/Not Resolved]
  - Sinusitis [Not Recovered/Not Resolved]
  - Toothache [Not Recovered/Not Resolved]
